FAERS Safety Report 23550050 (Version 1)
Quarter: 2024Q1

REPORT INFORMATION
  Report Type: Spontaneous
  Country: FR (occurrence: None)
  Receive Date: 20240221
  Receipt Date: 20240221
  Transmission Date: 20240409
  Serious: Yes (Life-Threatening, Other)
  Sender: FDA-Public Use
  Company Number: 2024A042890

PATIENT
  Age: 30 Day
  Sex: Female

DRUGS (1)
  1. BEYFORTUS [Suspect]
     Active Substance: NIRSEVIMAB-ALIP
     Indication: Immunisation
     Dosage: UNK
     Dates: start: 20231027, end: 20231027

REACTIONS (2)
  - Respiratory syncytial virus bronchiolitis [Recovered/Resolved]
  - Drug ineffective [Unknown]
